FAERS Safety Report 18924335 (Version 1)
Quarter: 2021Q1

REPORT INFORMATION
  Report Type: Other
  Country: US (occurrence: US)
  Receive Date: 20210222
  Receipt Date: 20210222
  Transmission Date: 20210420
  Serious: Yes (Other)
  Sender: FDA-Public Use
  Company Number: US-B.BRAUN MEDICAL INC.-2107131

PATIENT
  Age: 27 Year
  Sex: Female

DRUGS (1)
  1. SODIUM CHLORIDE INJECTION USP 0264?7800?09 [Suspect]
     Active Substance: SODIUM CHLORIDE

REACTIONS (1)
  - Drug ineffective [None]
